FAERS Safety Report 6876447-0 (Version None)
Quarter: 2010Q3

REPORT INFORMATION
  Report Type: 
  Country: None (occurrence: None)
  Receive Date: 20100727
  Receipt Date: 20100708
  Transmission Date: 20110219
  Serious: Yes (Other)
  Sender: FDA-Public Use
  Company Number: PHHY2010CA45049

PATIENT
  Sex: Male

DRUGS (1)
  1. ACLASTA [Suspect]
     Indication: OSTEOPOROSIS
     Dosage: 5 MG
     Dates: start: 20100630

REACTIONS (20)
  - ARTHRALGIA [None]
  - BLOOD CREATININE INCREASED [None]
  - BONE PAIN [None]
  - CHILLS [None]
  - DYSSTASIA [None]
  - FEELING COLD [None]
  - GAIT DISTURBANCE [None]
  - HAEMOGLOBIN DECREASED [None]
  - HYPOCHROMASIA [None]
  - LYMPHOPENIA [None]
  - MALAISE [None]
  - MICROCYTOSIS [None]
  - MUSCULOSKELETAL STIFFNESS [None]
  - NEUTROPHIL COUNT INCREASED [None]
  - OROPHARYNGEAL PAIN [None]
  - PAIN [None]
  - POLYCHROMASIA [None]
  - RED BLOOD CELL COUNT DECREASED [None]
  - TREMOR [None]
  - VIRAL INFECTION [None]
